FAERS Safety Report 26135598 (Version 1)
Quarter: 2025Q4

REPORT INFORMATION
  Report Type: Spontaneous
  Country: US (occurrence: None)
  Receive Date: 20251208
  Receipt Date: 20251208
  Transmission Date: 20260118
  Serious: Yes (Life-Threatening)
  Sender: FDA-CTU
  Company Number: None

PATIENT
  Age: 35 Year
  Sex: Male
  Weight: 72.9 kg

DRUGS (1)
  1. RISPERDAL [Suspect]
     Active Substance: RISPERIDONE
     Indication: Major depression
     Dates: start: 20250818, end: 20250819

REACTIONS (3)
  - Suicidal ideation [None]
  - Victim of abuse [None]
  - Legal problem [None]

NARRATIVE: CASE EVENT DATE: 20250819
